FAERS Safety Report 7994719-3 (Version None)
Quarter: 2011Q4

REPORT INFORMATION
  Report Type: 
  Country: None (occurrence: None)
  Receive Date: 20111220
  Receipt Date: 20111215
  Transmission Date: 20120403
  Serious: Yes (Death)
  Sender: FDA-Public Use
  Company Number: DE-JNJFOC-20111207177

PATIENT
  Age: 38 Year
  Sex: Male

DRUGS (1)
  1. PALIPERIDONE [Suspect]
     Indication: PRODUCT USED FOR UNKNOWN INDICATION
     Route: 030

REACTIONS (2)
  - MALAISE [None]
  - MYOCARDIAL INFARCTION [None]
